FAERS Safety Report 22530484 (Version 1)
Quarter: 2023Q2

REPORT INFORMATION
  Report Type: Spontaneous
  Country: GB (occurrence: GB)
  Receive Date: 20230607
  Receipt Date: 20230607
  Transmission Date: 20230722
  Serious: Yes (Hospitalization)
  Sender: FDA-Public Use
  Company Number: None

PATIENT
  Age: 68 Year

DRUGS (2)
  1. CYCLOSPORINE [Suspect]
     Active Substance: CYCLOSPORINE
     Indication: Renal disorder
     Dosage: 100 MG
     Route: 065
  2. TRIMETHOPRIM [Suspect]
     Active Substance: TRIMETHOPRIM
     Indication: Urinary tract infection
     Dosage: 100 MG
     Route: 065

REACTIONS (3)
  - Nephropathy toxic [Recovering/Resolving]
  - Electrolyte imbalance [Recovering/Resolving]
  - Blood creatinine increased [Recovering/Resolving]
